FAERS Safety Report 9919723 (Version 3)
Quarter: 2014Q2

REPORT INFORMATION
  Report Type: Report from Study
  Country: BR (occurrence: BR)
  Receive Date: 20140224
  Receipt Date: 20140429
  Transmission Date: 20141212
  Serious: Yes (Other)
  Sender: FDA-Public Use
  Company Number: PHHY2013BR017268

PATIENT
  Age: 85 Year
  Sex: Female

DRUGS (9)
  1. EXELON PATCH [Suspect]
     Indication: DEMENTIA ALZHEIMER^S TYPE
     Dosage: 4.6 MG, DAILY
     Route: 062
     Dates: start: 20130207
  2. EXELON PATCH [Suspect]
     Indication: ISCHAEMIA
     Dosage: UNK UKN, UNK
     Route: 062
     Dates: start: 20130214
  3. EXELON PATCH [Suspect]
     Dosage: 9.5 MG, UNK
     Route: 062
  4. EXELON PATCH [Suspect]
     Dosage: 9.5 MG, 18MG/10CM2 1 ADHESIVE DAILY
     Route: 062
     Dates: start: 201303, end: 20140214
  5. EXELON PATCH [Suspect]
     Dosage: 13.3 MG, 27MG/15CM2 1 ADHESIVE DAILY
     Route: 062
     Dates: start: 20140220
  6. CONCOR [Concomitant]
     Indication: HYPERTENSION
     Dosage: 1 DF, DAILY
     Route: 048
  7. MICARDIS [Concomitant]
     Indication: HYPERTENSION
     Dosage: 1 DF, DAILY
     Route: 048
  8. LASIX [Concomitant]
     Indication: DIURETIC THERAPY
     Dosage: 2 DF, DAILY
     Route: 048
  9. ANLO [Concomitant]
     Indication: HYPERTENSION
     Dosage: 1 DF, DAILY

REACTIONS (5)
  - Cerebral ischaemia [Not Recovered/Not Resolved]
  - Peripheral coldness [Recovered/Resolved]
  - Skin discolouration [Recovered/Resolved]
  - Dizziness [Recovered/Resolved]
  - Drug ineffective [Unknown]
